FAERS Safety Report 4467067-6 (Version None)
Quarter: 2004Q4

REPORT INFORMATION
  Report Type: 
  Country: None (occurrence: None)
  Receive Date: 20041004
  Receipt Date: 20040921
  Transmission Date: 20050328
  Serious: Yes (Life-Threatening, Hospitalization, Other)
  Sender: FDA-Public Use
  Company Number: 2004053727

PATIENT
  Age: 53 Year
  Sex: Male

DRUGS (11)
  1. LIPITOR [Suspect]
     Indication: HYPERCHOLESTEROLAEMIA
     Dosage: 40 MG (40 MG, 1 IN 1 D), ORAL
     Route: 048
  2. GABAPENTIN [Concomitant]
  3. QUINAPRIL HCL [Concomitant]
  4. AMITRIPTYLINE HCL [Concomitant]
  5. HYDRALAZINE HYDROCHLORIDE (HYDRALAZINE HYDROCHLORIDE) [Concomitant]
  6. CLONIDINE [Concomitant]
  7. WARFARIN (WARFARIN) [Concomitant]
  8. HYDROCHLOROTHIAZIDE [Concomitant]
  9. METHADONE HCL [Concomitant]
  10. METOPROLOL TARTRATE [Concomitant]
  11. TRAZODONE HCL [Concomitant]

REACTIONS (5)
  - COMMUNICATION DISORDER [None]
  - CONFUSIONAL STATE [None]
  - DISORIENTATION [None]
  - RENAL FAILURE ACUTE [None]
  - RHABDOMYOLYSIS [None]
